FAERS Safety Report 24355183 (Version 2)
Quarter: 2024Q4

REPORT INFORMATION
  Report Type: Report from Study
  Country: NL (occurrence: NL)
  Receive Date: 20240924
  Receipt Date: 20241011
  Transmission Date: 20250114
  Serious: Yes (Death)
  Sender: ABBVIE
  Company Number: NL-ABBVIE-5933265

PATIENT
  Age: 81 Year
  Sex: Female
  Weight: 75 kg

DRUGS (11)
  1. CARBIDOPA\LEVODOPA [Suspect]
     Active Substance: CARBIDOPA\LEVODOPA
     Indication: Parkinson^s disease
     Dosage: MD: 11.5 ML, CD: 2.0 ML/H, ED: 2.0 ML,?DURATION TEXT: REMAINS AT 16 HOURS
     Route: 050
     Dates: start: 20231228, end: 20240205
  2. CARBIDOPA\LEVODOPA [Suspect]
     Active Substance: CARBIDOPA\LEVODOPA
     Dosage: MD: 11.5 ML, CD: 2.0 ML/H, ED: 2.0 ML,?DURATION TEXT: REMAINS AT 16 HOURS
     Route: 050
     Dates: start: 20240327
  3. CARBIDOPA\LEVODOPA [Suspect]
     Active Substance: CARBIDOPA\LEVODOPA
     Dosage: MD: 11.5 ML, CD: 2.0 ML/H, ED: 2.0 ML,?DURATION TEXT: REMAINS AT 16 HOURS
     Route: 050
     Dates: start: 20231005, end: 20231228
  4. CARBIDOPA\LEVODOPA [Suspect]
     Active Substance: CARBIDOPA\LEVODOPA
     Route: 050
     Dates: start: 20180222
  5. CARBIDOPA\LEVODOPA [Suspect]
     Active Substance: CARBIDOPA\LEVODOPA
     Dosage: MD: 11.5 ML, CD: 2.0 ML/H, ED: 2.0 ML,?DURATION TEXT: REMAINS AT 16 HOURS
     Route: 050
     Dates: start: 20240304, end: 20240327
  6. CARBIDOPA\LEVODOPA [Suspect]
     Active Substance: CARBIDOPA\LEVODOPA
     Dosage: MD: 11.0 ML, CD: 2.8 ML/H, ED: 2.0 ML,?DURATION TEXT: REMAINS AT 16 HOURS
     Route: 050
     Dates: start: 20240205, end: 20240304
  7. SYMMETREL [Concomitant]
     Active Substance: AMANTADINE HYDROCHLORIDE
     Indication: Parkinson^s disease
  8. BENSERAZIDE HYDROCHLORIDE\LEVODOPA [Concomitant]
     Active Substance: BENSERAZIDE HYDROCHLORIDE\LEVODOPA
     Indication: Parkinson^s disease
     Dosage: AFTER DISCONNECTING PUMP
  9. CLOZAPINE [Concomitant]
     Active Substance: CLOZAPINE
     Indication: Hallucination
  10. BUPRENORPHINE [Concomitant]
     Active Substance: BUPRENORPHINE
     Indication: Pain in extremity
     Route: 003
  11. MOVICOLON [Concomitant]
     Active Substance: POLYETHYLENE GLYCOL 3350\POTASSIUM CHLORIDE\SODIUM BICARBONATE\SODIUM CHLORIDE
     Indication: Abnormal faeces

REACTIONS (1)
  - Cardiac arrest [Fatal]

NARRATIVE: CASE EVENT DATE: 20240915
